FAERS Safety Report 15379273 (Version 1)
Quarter: 2018Q3

REPORT INFORMATION
  Report Type: Report from Study
  Country: CO (occurrence: CO)
  Receive Date: 20180913
  Receipt Date: 20180913
  Transmission Date: 20181010
  Serious: Yes (Other)
  Sender: FDA-Public Use
  Company Number: CO-SA-2017SA214072

PATIENT
  Age: 33 Year
  Sex: Female

DRUGS (1)
  1. ALEMTUZUMAB [Suspect]
     Active Substance: ALEMTUZUMAB
     Indication: MULTIPLE SCLEROSIS
     Dosage: 12 MG,QD
     Route: 041
     Dates: start: 20170327, end: 20170331

REACTIONS (12)
  - Leukocyturia [Recovered/Resolved]
  - White blood cell count decreased [Recovered/Resolved]
  - Urobilinogen urine increased [Recovered/Resolved]
  - Blood thyroid stimulating hormone increased [Recovered/Resolved]
  - Leukocyturia [Recovered/Resolved]
  - Proteinuria [Recovered/Resolved]
  - Lymphocyte count decreased [Not Recovered/Not Resolved]
  - Bacterial test [Recovered/Resolved]
  - Urinary sediment present [Recovered/Resolved]
  - Lymphocyte percentage decreased [Recovered/Resolved]
  - Bacterial test positive [Recovered/Resolved]
  - Neutrophil percentage increased [Recovered/Resolved]

NARRATIVE: CASE EVENT DATE: 20171028
